FAERS Safety Report 4401105-1 (Version None)
Quarter: 2004Q3

REPORT INFORMATION
  Report Type: 
  Country: None (occurrence: None)
  Receive Date: 20040907
  Receipt Date: 20031103
  Transmission Date: 20050211
  Serious: No
  Sender: FDA-Public Use
  Company Number: US-BRISTOL-MYERS SQUIBB COMPANY-12424883

PATIENT
  Age: 91 Year
  Sex: Male
  Weight: 51 kg

DRUGS (3)
  1. COUMADIN [Suspect]
     Indication: PHLEBITIS
     Route: 048
  2. CORGARD [Concomitant]
  3. ACCUPRIL [Concomitant]

REACTIONS (1)
  - SKIN DISCOLOURATION [None]
